FAERS Safety Report 9752217 (Version 1)
Quarter: 2013Q4

REPORT INFORMATION
  Report Type: Spontaneous
  Country: FR (occurrence: FR)
  Receive Date: 20131213
  Receipt Date: 20131213
  Transmission Date: 20140711
  Serious: Yes (Hospitalization)
  Sender: FDA-Public Use
  Company Number: FR-ROCHE-1318422

PATIENT
  Age: 89 Year
  Sex: Female

DRUGS (3)
  1. APRANAX [Suspect]
     Indication: PAIN
     Dosage: 550 MG
     Route: 048
     Dates: start: 20131112, end: 20131115
  2. TAHOR [Concomitant]
     Route: 065
  3. ALLOPURINOL [Concomitant]
     Route: 065

REACTIONS (4)
  - Melaena [Recovered/Resolved]
  - Confusional state [Recovered/Resolved]
  - Renal impairment [Recovering/Resolving]
  - Hepatic function abnormal [Recovered/Resolved]
